FAERS Safety Report 5306918-X (Version None)
Quarter: 2007Q2

REPORT INFORMATION
  Report Type: 
  Country: None (occurrence: None)
  Receive Date: 20070419
  Receipt Date: 20060401
  Transmission Date: 20071010
  Serious: Yes (Death, Hospitalization)
  Sender: FDA-Public Use
  Company Number: 2007SP006717

PATIENT
  Age: 65 Year
  Sex: Female

DRUGS (2)
  1. TEMOZOLOMIDE (S-P) [Suspect]
     Indication: GLIOBLASTOMA
     Dosage: SEE IMAGE
  2. VALPROIC ACID [Suspect]
     Indication: CONVULSION PROPHYLAXIS

REACTIONS (8)
  - ACUTE HEPATIC FAILURE [None]
  - DISEASE RECURRENCE [None]
  - ENCEPHALOPATHY [None]
  - GENERAL PHYSICAL HEALTH DETERIORATION [None]
  - HEPATITIS B [None]
  - HEPATITIS B CORE ANTIGEN POSITIVE [None]
  - HEPATITIS B SURFACE ANTIGEN POSITIVE [None]
  - HEPATOTOXICITY [None]
